FAERS Safety Report 20919110 (Version 1)
Quarter: 2022Q2

REPORT INFORMATION
  Report Type: Spontaneous
  Country: KR (occurrence: KR)
  Receive Date: 20220606
  Receipt Date: 20220606
  Transmission Date: 20220721
  Serious: Yes (Other)
  Sender: FDA-Public Use
  Company Number: KR-GUERBET-KR-20220006

PATIENT
  Age: 26 Year
  Sex: Male

DRUGS (1)
  1. ETHIODIZED OIL [Suspect]
     Active Substance: ETHIODIZED OIL
     Indication: Therapeutic embolisation
     Dosage: 1 ML OF A 1:2 MIXTURE OF UNSPECIFIED GLUE AND IODIZED OIL.
     Route: 042

REACTIONS (2)
  - Embolism venous [Unknown]
  - Product use issue [Unknown]
